FAERS Safety Report 6952148-5 (Version None)
Quarter: 2010Q3

REPORT INFORMATION
  Report Type: 
  Country: None (occurrence: None)
  Receive Date: 20100829
  Receipt Date: 20100426
  Transmission Date: 20110219
  Serious: No
  Sender: FDA-Public Use
  Company Number: US-ABBOTT-10P-163-0641938-00

PATIENT
  Age: 75 Year
  Sex: Male

DRUGS (14)
  1. NIASPAN [Suspect]
     Indication: HIGH DENSITY LIPOPROTEIN DECREASED
     Dates: start: 20100331, end: 20100422
  2. NIASPAN [Suspect]
     Dates: start: 20100331, end: 20100422
  3. NIASPAN [Suspect]
     Dates: start: 20100422
  4. NIASPAN [Suspect]
     Indication: HIGH DENSITY LIPOPROTEIN DECREASED
     Dates: start: 20100422
  5. NIASPAN [Suspect]
     Dates: start: 20100224, end: 20100331
  6. COUMADIN [Concomitant]
     Indication: ANGIOPLASTY
  7. COUMADIN [Concomitant]
     Indication: STENT PLACEMENT
  8. TENORMIN [Concomitant]
     Indication: CARDIAC DISORDER
  9. EFFIENT [Concomitant]
     Indication: STENT PLACEMENT
  10. EFFIENT [Concomitant]
     Indication: ANGIOPLASTY
  11. XANAX [Concomitant]
     Indication: ANXIETY
     Dates: start: 19700101
  12. NORVASC [Concomitant]
     Indication: CARDIAC DISORDER
  13. PRAVACHOL [Concomitant]
     Indication: BLOOD CHOLESTEROL INCREASED
  14. ZETIA [Concomitant]
     Indication: PRODUCT USED FOR UNKNOWN INDICATION

REACTIONS (3)
  - ERYTHEMA [None]
  - FLUSHING [None]
  - PARAESTHESIA [None]
